FAERS Safety Report 9259884 (Version 2)
Quarter: 2013Q2

REPORT INFORMATION
  Report Type: Report from Study
  Country: GR (occurrence: GR)
  Receive Date: 20130429
  Receipt Date: 20130528
  Transmission Date: 20140414
  Serious: Yes (Hospitalization)
  Sender: FDA-Public Use
  Company Number: GR-009507513-1304GRC015001

PATIENT
  Age: 44 Year
  Sex: Male
  Weight: 95 kg

DRUGS (4)
  1. REMERON [Suspect]
     Indication: DEPRESSION
     Dosage: 60 MG, QD
     Route: 048
     Dates: start: 20120914, end: 20130413
  2. REMICADE [Suspect]
     Indication: CROHN^S DISEASE
     Dosage: 5 MG/KG, UNK
     Route: 042
     Dates: start: 20120723
  3. REMICADE [Suspect]
     Dosage: UNK
     Dates: start: 20130516
  4. BUDESONIDE [Concomitant]
     Indication: CROHN^S DISEASE
     Dosage: 2,3 GR, QD,ENEMA ROUTE
     Route: 054
     Dates: start: 20130315, end: 20130412

REACTIONS (1)
  - Hypertransaminasaemia [Recovered/Resolved]
